FAERS Safety Report 18716021 (Version 1)
Quarter: 2021Q1

REPORT INFORMATION
  Report Type: Spontaneous
  Country: GB (occurrence: GB)
  Receive Date: 20210108
  Receipt Date: 20210108
  Transmission Date: 20210419
  Serious: Yes (Life-Threatening, Hospitalization)
  Sender: FDA-Public Use
  Company Number: GB-ACCORD-213874

PATIENT
  Age: 73 Year
  Sex: Female

DRUGS (6)
  1. APIXABAN [Concomitant]
     Active Substance: APIXABAN
  2. BISOPROLOL [Concomitant]
     Active Substance: BISOPROLOL
  3. THYROXINE [Concomitant]
     Active Substance: LEVOTHYROXINE
  4. METHOTREXATE. [Suspect]
     Active Substance: METHOTREXATE
     Indication: ARTHRITIS
     Route: 048
     Dates: start: 20120101, end: 20190101
  5. LANSOPRAZOLE. [Concomitant]
     Active Substance: LANSOPRAZOLE
  6. CLONIDINE. [Concomitant]
     Active Substance: CLONIDINE

REACTIONS (2)
  - Atrial fibrillation [Recovered/Resolved with Sequelae]
  - Pulmonary arterial pressure increased [Recovered/Resolved]

NARRATIVE: CASE EVENT DATE: 20181101
